FAERS Safety Report 8378302-6 (Version None)
Quarter: 2012Q2

REPORT INFORMATION
  Report Type: 
  Country: None (occurrence: None)
  Receive Date: 20120522
  Receipt Date: 20120514
  Transmission Date: 20120825
  Serious: Yes (Other)
  Sender: FDA-Public Use
  Company Number: AT-PFIZER INC-2012064844

PATIENT
  Age: 39 Year
  Sex: Female

DRUGS (7)
  1. HALOPERIDOL [Interacting]
     Dosage: 3MG,UNK
  2. MIRTAZAPINE [Suspect]
     Indication: DEPRESSION
     Dosage: 30 MG, DAY
  3. RISPERIDONE [Interacting]
     Indication: PSYCHOTIC DISORDER
     Dosage: UNK
  4. LORAZEPAM [Suspect]
     Indication: DEPRESSED MOOD
     Dosage: UNK
  5. ARIPIPRAZOLE [Interacting]
     Indication: PSYCHOTIC DISORDER
     Dosage: 30MG/DAY
  6. VENLAFAXINE HCL [Interacting]
     Indication: DEPRESSED MOOD
     Dosage: UNK
  7. HALOPERIDOL [Interacting]
     Indication: PSYCHOTIC DISORDER
     Dosage: 7.5 MG,UNK

REACTIONS (7)
  - GALACTORRHOEA [None]
  - SEDATION [None]
  - DRUG INTERACTION [None]
  - PSYCHOTIC DISORDER [None]
  - DRUG INEFFECTIVE [None]
  - DRUG LEVEL ABOVE THERAPEUTIC [None]
  - HYPERPROLACTINAEMIA [None]
